FAERS Safety Report 8013124-7 (Version None)
Quarter: 2011Q4

REPORT INFORMATION
  Report Type: 
  Country: None (occurrence: None)
  Receive Date: 20111229
  Receipt Date: 20111227
  Transmission Date: 20120403
  Serious: Yes (Hospitalization)
  Sender: FDA-Public Use
  Company Number: US-SANOFI-AVENTIS-200917605GDDC

PATIENT
  Age: 65 Year
  Sex: Male
  Weight: 115.86 kg

DRUGS (36)
  1. ACETAMINOPHEN [Concomitant]
     Dates: start: 20090722, end: 20090805
  2. PROMETHAZINE [Concomitant]
     Dates: start: 20090722, end: 20090805
  3. DOCETAXEL [Suspect]
     Dosage: DOSE UNIT: 75 MG/M**2
     Route: 042
     Dates: start: 20090709, end: 20090709
  4. PIOGLITAZONE [Concomitant]
     Dosage: DOSE AS USED: UNK
  5. ALBUMIN HUMAN ^ISM^ [Concomitant]
     Dates: start: 20090801, end: 20090801
  6. GUAIFENESIN DM [Concomitant]
     Dates: start: 20090722, end: 20090805
  7. HYDRODIURIL [Concomitant]
     Dates: start: 20090722, end: 20090805
  8. MICONAZOLE [Concomitant]
     Dates: start: 20090722, end: 20090805
  9. MULTI-VITAMIN [Concomitant]
     Dates: start: 20090803, end: 20090805
  10. POTASSIUM CHLORIDE [Concomitant]
     Dates: start: 20090722, end: 20090805
  11. AFLIBERCEPT [Suspect]
     Dosage: DOSE UNIT: 6 MG/KG
     Route: 042
     Dates: start: 20090709, end: 20090709
  12. LOVENOX [Concomitant]
     Dates: start: 20090726, end: 20090805
  13. ZETIA [Concomitant]
     Dosage: DOSE AS USED: UNK
  14. HYDROCHLOROTHIAZIDE/LOSARTAN POTASSIUM [Concomitant]
     Dosage: DOSE AS USED: UNK
  15. ALPRAZOLAM [Concomitant]
     Dates: start: 20090722, end: 20090805
  16. DEPAKOTE [Concomitant]
     Dates: start: 20090722, end: 20090805
  17. HEPARIN [Concomitant]
     Dates: start: 20090730, end: 20090805
  18. NOVOLIN R [Concomitant]
     Dates: start: 20090722, end: 20090805
  19. LORAZEPAM [Concomitant]
     Dates: start: 20090724, end: 20090805
  20. NASAL SALINE [Concomitant]
     Dates: start: 20090726, end: 20090805
  21. HEPARIN LOCK-FLUSH [Concomitant]
     Dates: start: 20090722, end: 20090805
  22. VALPROATE SODIUM [Concomitant]
     Dates: start: 20090724, end: 20090805
  23. PREDNISONE TAB [Suspect]
     Dosage: DOSE UNIT: 5 MG
     Route: 048
     Dates: start: 20090709, end: 20090721
  24. COZAAR [Concomitant]
     Dates: start: 20090722, end: 20090805
  25. FOLIC ACID [Concomitant]
     Dates: start: 20090803, end: 20090805
  26. METFORMIN HCL [Concomitant]
     Dosage: DOSE AS USED: UNK
  27. DECADRON [Concomitant]
     Dosage: DOSE AS USED: UNK
     Dates: start: 20090708
  28. SIMVASTATIN [Concomitant]
     Dosage: DOSE AS USED: UNK
  29. ASPIRIN [Concomitant]
     Dosage: DOSE AS USED: UNK
  30. BELLADONNA ALKALOIDS [Concomitant]
     Dates: start: 20090722, end: 20090805
  31. LEVAQUIN [Concomitant]
     Dates: start: 20090802, end: 20090805
  32. NORVASC [Concomitant]
     Dates: start: 20090722, end: 20090805
  33. SOLU-CORTEF [Concomitant]
     Dates: start: 20090722, end: 20090805
  34. SENOKOT /UNK/ [Concomitant]
     Dates: start: 20090722, end: 20090805
  35. THIAMINE HCL [Concomitant]
     Dates: start: 20090803, end: 20090805
  36. AMBIEN [Concomitant]
     Dates: start: 20090722, end: 20090805

REACTIONS (2)
  - CEREBRAL INFARCTION [None]
  - CONFUSIONAL STATE [None]
